FAERS Safety Report 4940386-2 (Version None)
Quarter: 2006Q1

REPORT INFORMATION
  Report Type: 
  Country: None (occurrence: None)
  Receive Date: 20060310
  Receipt Date: 20050909
  Transmission Date: 20060701
  Serious: Yes (Hospitalization, Disabling)
  Sender: FDA-Public Use
  Company Number: US-MERCK-0509USA01666

PATIENT
  Age: 34 Year
  Sex: Male
  Weight: 109 kg

DRUGS (13)
  1. VIOXX [Suspect]
     Indication: SHOULDER PAIN
     Route: 048
     Dates: start: 20001101, end: 20020811
  2. ACETAMINOPHEN AND HYDROCODONE BITARTRATE [Concomitant]
     Route: 065
  3. VIAGRA [Concomitant]
     Route: 065
  4. CLINDAMYCIN [Concomitant]
     Route: 065
  5. IBUPROFEN [Concomitant]
     Route: 065
  6. VALTREX [Concomitant]
     Route: 065
  7. ENBREL [Concomitant]
     Route: 065
  8. NASONEX [Concomitant]
     Route: 065
  9. CLARITIN [Concomitant]
     Route: 065
  10. AMBIEN [Concomitant]
     Route: 065
  11. FLUOXETINE [Concomitant]
     Route: 065
  12. ENDOCET [Concomitant]
     Route: 065
  13. DOVONEX [Concomitant]
     Route: 065

REACTIONS (8)
  - ANXIETY [None]
  - ARTHROPATHY [None]
  - BLOOD CHOLESTEROL INCREASED [None]
  - CORONARY ARTERY DISEASE [None]
  - DEPRESSION [None]
  - HYPERLIPIDAEMIA [None]
  - HYPERTENSION [None]
  - MYOCARDIAL INFARCTION [None]
